FAERS Safety Report 9249171 (Version 1)
Quarter: 2013Q2

REPORT INFORMATION
  Report Type: Spontaneous
  Country: CO (occurrence: CO)
  Receive Date: 20130423
  Receipt Date: 20130423
  Transmission Date: 20140414
  Serious: Yes (Other)
  Sender: FDA-Public Use
  Company Number: CO-PFIZER INC-2013120681

PATIENT
  Age: 9 Year
  Sex: Female

DRUGS (1)
  1. GENOTROPIN [Suspect]
     Indication: TURNER^S SYNDROME
     Dosage: 1.8 MG, 1X/DAY
     Route: 058
     Dates: start: 2003, end: 2007

REACTIONS (1)
  - Kidney enlargement [Recovered/Resolved]
